FAERS Safety Report 25808036 (Version 1)
Quarter: 2025Q3

REPORT INFORMATION
  Report Type: Spontaneous
  Country: US (occurrence: US)
  Receive Date: 20250916
  Receipt Date: 20250916
  Transmission Date: 20251021
  Serious: No
  Sender: BIOCRYST PHARMACEUTICALS
  Company Number: US-BIOCRYST PHARMACEUTICALS, INC.-2025BCR01110

PATIENT

DRUGS (20)
  1. ORLADEYO [Suspect]
     Active Substance: BEROTRALSTAT HYDROCHLORIDE
     Indication: Hereditary angioedema
     Dosage: 110 MG, QD
     Route: 048
  2. SERTRALINE [Concomitant]
     Active Substance: SERTRALINE HYDROCHLORIDE
  3. JARDIANCE [Concomitant]
     Active Substance: EMPAGLIFLOZIN
  4. NIFEDIPINE [Concomitant]
     Active Substance: NIFEDIPINE
  5. ACETAMINOPHEN [Concomitant]
     Active Substance: ACETAMINOPHEN
  6. ASCORBIC ACID [Concomitant]
     Active Substance: ASCORBIC ACID
  7. BUDESONIDE [Concomitant]
     Active Substance: BUDESONIDE
  8. CARVEDILOL [Concomitant]
     Active Substance: CARVEDILOL
  9. CETIRIZINE [Concomitant]
     Active Substance: CETIRIZINE HYDROCHLORIDE
  10. VITAMIN D3 [Concomitant]
     Active Substance: CHOLECALCIFEROL
  11. DEXTROMETHORPHAN [Concomitant]
     Active Substance: DEXTROMETHORPHAN
  12. DULOXETINE [Concomitant]
     Active Substance: DULOXETINE
  13. FAMOTIDINE [Concomitant]
     Active Substance: FAMOTIDINE
  14. HYDRALAZINE [Concomitant]
     Active Substance: HYDRALAZINE HYDROCHLORIDE
  15. PANTOPRAZOLE [Concomitant]
     Active Substance: PANTOPRAZOLE
  16. ALBUTEROL SULFATE [Concomitant]
     Active Substance: ALBUTEROL SULFATE
  17. EPIPEN [Concomitant]
     Active Substance: EPINEPHRINE
  18. FLOVENT [Concomitant]
     Active Substance: FLUTICASONE PROPIONATE
  19. SYMBICORT [Concomitant]
     Active Substance: BUDESONIDE\FORMOTEROL FUMARATE DIHYDRATE
  20. AMLODIPINE BESYLATE [Concomitant]
     Active Substance: AMLODIPINE BESYLATE

REACTIONS (1)
  - Headache [Not Recovered/Not Resolved]
